FAERS Safety Report 6753346-6 (Version None)
Quarter: 2010Q2

REPORT INFORMATION
  Report Type: 
  Country: None (occurrence: None)
  Receive Date: 20100520
  Receipt Date: 20090429
  Transmission Date: 20101027
  Serious: Yes (Other)
  Sender: FDA-Public Use
  Company Number: 2009207024

PATIENT
  Age: 46 Year
  Sex: Female

DRUGS (6)
  1. PROVERA [Suspect]
     Indication: HORMONE REPLACEMENT THERAPY
     Dosage: UNK, ORAL
     Route: 048
     Dates: start: 19950101, end: 19981203
  2. ESTTRACE (ESTRADIOL) [Suspect]
     Indication: HORMONE REPLACEMENT THERAPY
     Dosage: UNK
     Dates: start: 19950911, end: 19990101
  3. PROMETRIUM [Suspect]
     Indication: HORMONE REPLACEMENT THERAPY
     Dates: start: 19981203, end: 19990101
  4. ASPIRIN [Concomitant]
  5. SUDAFED 12 HOUR [Concomitant]
  6. MOTRIN [Concomitant]

REACTIONS (1)
  - BREAST CANCER FEMALE [None]
